FAERS Safety Report 15699424 (Version 1)
Quarter: 2018Q4

REPORT INFORMATION
  Report Type: Other
  Country: FR (occurrence: FR)
  Receive Date: 20181207
  Receipt Date: 20181207
  Transmission Date: 20190205
  Serious: Yes (Other)
  Sender: FDA-Public Use
  Company Number: FR-ASPEN-GLO2018FR012127

PATIENT
  Age: 55 Year
  Sex: Male
  Weight: 91 kg

DRUGS (15)
  1. IMBRUVICA [Suspect]
     Active Substance: IBRUTINIB
     Indication: WALDENSTROM^S MACROGLOBULINAEMIA
     Dosage: 420 MG, QD
     Route: 048
     Dates: start: 20160412
  2. METHOTREXATE. [Suspect]
     Active Substance: METHOTREXATE
     Indication: PROPHYLAXIS AGAINST GRAFT VERSUS HOST DISEASE
     Route: 042
  3. BUSULFAN. [Suspect]
     Active Substance: BUSULFAN
     Indication: WALDENSTROM^S MACROGLOBULINAEMIA
     Route: 042
  4. MABTHERA [Suspect]
     Active Substance: RITUXIMAB
     Indication: WALDENSTROM^S MACROGLOBULINAEMIA
     Route: 042
  5. DEXAMETHASONE. [Suspect]
     Active Substance: DEXAMETHASONE
     Indication: WALDENSTROM^S MACROGLOBULINAEMIA
     Route: 048
  6. THYMOGLOBULINE [Suspect]
     Active Substance: LAPINE T-LYMPHOCYTE IMMUNE GLOBULIN
     Indication: WALDENSTROM^S MACROGLOBULINAEMIA
     Route: 042
  7. VINDESINE [Suspect]
     Active Substance: VINDESINE
     Indication: WALDENSTROM^S MACROGLOBULINAEMIA
     Route: 042
  8. THALIDOMIDE [Suspect]
     Active Substance: THALIDOMIDE
     Indication: WALDENSTROM^S MACROGLOBULINAEMIA
     Route: 048
  9. MELPHALAN. [Suspect]
     Active Substance: MELPHALAN
     Indication: WALDENSTROM^S MACROGLOBULINAEMIA
     Route: 042
  10. CYTARABINE EG [Suspect]
     Active Substance: CYTARABINE
     Indication: WALDENSTROM^S MACROGLOBULINAEMIA
     Route: 042
  11. ENDOXAN [Suspect]
     Active Substance: CYCLOPHOSPHAMIDE
     Indication: WALDENSTROM^S MACROGLOBULINAEMIA
     Route: 042
  12. VELCADE [Suspect]
     Active Substance: BORTEZOMIB
     Indication: WALDENSTROM^S MACROGLOBULINAEMIA
     Route: 058
  13. ETOPOSIDE. [Suspect]
     Active Substance: ETOPOSIDE
     Indication: WALDENSTROM^S MACROGLOBULINAEMIA
     Route: 042
  14. CARMUSTINE. [Suspect]
     Active Substance: CARMUSTINE
     Indication: WALDENSTROM^S MACROGLOBULINAEMIA
     Route: 042
  15. FLUDARABINE [Suspect]
     Active Substance: FLUDARABINE PHOSPHATE
     Indication: WALDENSTROM^S MACROGLOBULINAEMIA
     Route: 042

REACTIONS (2)
  - Basal cell carcinoma [Recovered/Resolved]
  - Off label use [Unknown]

NARRATIVE: CASE EVENT DATE: 201609
